FAERS Safety Report 26126370 (Version 2)
Quarter: 2025Q4

REPORT INFORMATION
  Report Type: Spontaneous
  Country: EU (occurrence: EU)
  Receive Date: 20251205
  Receipt Date: 20251216
  Transmission Date: 20260119
  Serious: Yes (Hospitalization, Other)
  Sender: SANDOZ
  Company Number: EU-DR. FALK PHARMA GMBH-SA-262-25

PATIENT
  Age: 15 Year
  Sex: Female
  Weight: 65 kg

DRUGS (5)
  1. AMLODIPINE [Suspect]
     Active Substance: AMLODIPINE BESYLATE
     Indication: Suicide attempt
     Dosage: 50 MILLIGRAM, SINGLE
     Route: 065
     Dates: start: 20251116, end: 20251116
  2. ACETAMINOPHEN\ASCORBIC ACID\CAFFEINE\CHLORPHENIRAMINE MALEATE [Suspect]
     Active Substance: ACETAMINOPHEN\ASCORBIC ACID\CAFFEINE\CHLORPHENIRAMINE MALEATE
     Indication: Suicide attempt
     Dosage: 12 TABLETS
     Route: 065
     Dates: start: 20251116, end: 20251116
  3. IBUPROFEN [Suspect]
     Active Substance: IBUPROFEN
     Indication: Suicide attempt
     Dosage: 2-3 TABLETS
     Route: 065
     Dates: start: 20251116, end: 20251116
  4. MORPHINE [Suspect]
     Active Substance: MORPHINE
     Indication: Suicide attempt
     Dosage: 100 MG
     Route: 065
     Dates: start: 20251116, end: 20251116
  5. MESALAMINE [Suspect]
     Active Substance: MESALAMINE
     Indication: Suicide attempt
     Dosage: 10-12 TABLETS
     Route: 065
     Dates: start: 20251116, end: 20251116

REACTIONS (5)
  - Suicide attempt [Unknown]
  - Somnolence [Unknown]
  - Dizziness [Not Recovered/Not Resolved]
  - Nausea [Unknown]
  - Intentional product misuse [Unknown]

NARRATIVE: CASE EVENT DATE: 20251116
